FAERS Safety Report 8076506-3 (Version None)
Quarter: 2011Q4

REPORT INFORMATION
  Report Type: 
  Country: None (occurrence: None)
  Receive Date: 20111221
  Receipt Date: 20110324
  Transmission Date: 20120403
  Serious: Yes (Hospitalization)
  Sender: FDA-Public Use
  Company Number: PHHY2011US15816

PATIENT
  Age: 86 Year
  Sex: Female
  Weight: 50.2 kg

DRUGS (9)
  1. EXJADE [Suspect]
     Indication: IRON OVERLOAD
     Dosage: 1000 MG, DAILY, ORAL
     Route: 048
     Dates: start: 20110216
  2. EXJADE [Suspect]
     Indication: MYELODYSPLASTIC SYNDROME
     Dosage: 1000 MG, DAILY, ORAL
     Route: 048
     Dates: start: 20110216
  3. HYDROCHLOROTHIAZIDE [Concomitant]
  4. CELEBREX [Concomitant]
  5. SIMVASTATIN [Concomitant]
  6. GLYBURIDE AND METFORMIN HCL [Concomitant]
  7. KAYEXALATE [Concomitant]
  8. CALCIUM CARBONATE [Concomitant]
  9. BLOOD TRANSFUSION, AUXILIARY PRODUCTS [Concomitant]

REACTIONS (4)
  - DIARRHOEA [None]
  - HAEMOGLOBIN DECREASED [None]
  - VERTIGO [None]
  - FATIGUE [None]
